FAERS Safety Report 9885356 (Version 2)
Quarter: 2014Q2

REPORT INFORMATION
  Report Type: Spontaneous
  Country: US (occurrence: US)
  Receive Date: 20140210
  Receipt Date: 20140403
  Transmission Date: 20141212
  Serious: Yes (Other)
  Sender: FDA-Public Use
  Company Number: US-TEVA-461358USA

PATIENT
  Age: 48 Year
  Sex: Male

DRUGS (4)
  1. NICOTINIC ACID [Suspect]
     Indication: HIGH DENSITY LIPOPROTEIN DECREASED
     Dosage: 1000 MILLIGRAM DAILY;
     Route: 048
     Dates: start: 20140124, end: 20140124
  2. LIPITOR [Concomitant]
     Indication: BLOOD CHOLESTEROL INCREASED
  3. LOSARTAN [Concomitant]
     Indication: BLOOD PRESSURE FLUCTUATION
  4. ZANAFLEX [Concomitant]

REACTIONS (24)
  - Hypersensitivity [Recovering/Resolving]
  - Hypertension [Recovered/Resolved]
  - Flushing [Recovered/Resolved]
  - Choking [Unknown]
  - Dyspnoea [Unknown]
  - Dyspnoea [Recovered/Resolved]
  - Feeling hot [Recovered/Resolved]
  - Erythema [Recovered/Resolved]
  - Ocular hyperaemia [Recovered/Resolved]
  - Eye irritation [Recovered/Resolved]
  - Lacrimation increased [Recovered/Resolved]
  - Heart rate increased [Recovered/Resolved]
  - Loss of consciousness [Recovered/Resolved]
  - Fall [Recovered/Resolved]
  - Venous injury [Recovered/Resolved]
  - Hypothermia [Recovered/Resolved]
  - Chills [Recovered/Resolved]
  - Cardiac flutter [Recovered/Resolved]
  - Palpitations [Recovered/Resolved]
  - Hyperthermia [Recovering/Resolving]
  - Contusion [Unknown]
  - Contusion [Recovering/Resolving]
  - Nausea [Unknown]
  - Pruritus [Recovering/Resolving]
